FAERS Safety Report 7608417-9 (Version None)
Quarter: 2011Q3

REPORT INFORMATION
  Report Type: 
  Country: None (occurrence: None)
  Receive Date: 20110713
  Receipt Date: 20110713
  Transmission Date: 20111222
  Serious: Yes (Hospitalization)
  Sender: FDA-Public Use
  Company Number: None

PATIENT
  Age: 74 Year
  Sex: Female
  Weight: 78.69 kg

DRUGS (2)
  1. AZACITIDINE [Suspect]
     Indication: ACUTE MYELOID LEUKAEMIA
     Dosage: 75 MG/M2/DAY D1-D5 OF 28D CYCLE
     Dates: start: 20110620, end: 20110624
  2. REVLIMID [Suspect]
     Indication: ACUTE MYELOID LEUKAEMIA
     Dosage: 50 MG PO QD FOR 28D CYCLE
     Route: 048
     Dates: start: 20110620

REACTIONS (11)
  - FALL [None]
  - GAIT DISTURBANCE [None]
  - COUGH [None]
  - FEBRILE NEUTROPENIA [None]
  - MYELODYSPLASTIC SYNDROME TRANSFORMATION [None]
  - CHILLS [None]
  - BACK PAIN [None]
  - PNEUMONIA [None]
  - ACUTE MYELOID LEUKAEMIA [None]
  - LUNG INFECTION [None]
  - PNEUMONITIS [None]
